FAERS Safety Report 19051278 (Version 1)
Quarter: 2021Q1

REPORT INFORMATION
  Report Type: Spontaneous
  Country: US (occurrence: US)
  Receive Date: 20210324
  Receipt Date: 20210324
  Transmission Date: 20210420
  Serious: Yes (Death)
  Sender: FDA-Public Use
  Company Number: None

PATIENT
  Age: 56 Year
  Sex: Female

DRUGS (2)
  1. LORAZEPAM. [Concomitant]
     Active Substance: LORAZEPAM
  2. TEMOZOLOMIDE. [Suspect]
     Active Substance: TEMOZOLOMIDE
     Indication: PARANASAL SINUS AND NASAL CAVITY MALIGNANT NEOPLASM
     Route: 048
     Dates: start: 20200123, end: 20210323

REACTIONS (1)
  - Death [None]

NARRATIVE: CASE EVENT DATE: 20210323
